FAERS Safety Report 9562817 (Version 2)
Quarter: 2013Q4

REPORT INFORMATION
  Report Type: Spontaneous
  Country: JP (occurrence: JP)
  Receive Date: 20130927
  Receipt Date: 20131004
  Transmission Date: 20140711
  Serious: Yes (Other)
  Sender: FDA-Public Use
  Company Number: JP-ASTRAZENECA-2013SE71832

PATIENT
  Age: 61 Year
  Sex: Male
  Weight: 85 kg

DRUGS (8)
  1. NEXIUM [Suspect]
     Route: 048
  2. FOSPHENYTOIN SODIUM [Interacting]
     Indication: CONVULSION
     Route: 041
     Dates: start: 20130911, end: 20130911
  3. FOSPHENYTOIN SODIUM [Interacting]
     Indication: CONVULSION
     Route: 041
     Dates: start: 20130912, end: 20130912
  4. STIVARGA [Interacting]
     Route: 065
  5. FEBURIC [Concomitant]
  6. URIEF [Concomitant]
  7. LYRICA [Concomitant]
  8. OXYCONTIN [Concomitant]

REACTIONS (6)
  - Drug interaction [Unknown]
  - Overdose [Unknown]
  - Depressed level of consciousness [Recovered/Resolved]
  - Vomiting [Recovered/Resolved]
  - Nystagmus [Recovered/Resolved]
  - Dysarthria [Recovered/Resolved]
